FAERS Safety Report 6279385-X (Version None)
Quarter: 2009Q3

REPORT INFORMATION
  Report Type: 
  Country: None (occurrence: None)
  Receive Date: 20090723
  Receipt Date: 20090716
  Transmission Date: 20100115
  Serious: Yes (Hospitalization)
  Sender: FDA-Public Use
  Company Number: US-GILEAD-2009-0022833

PATIENT
  Sex: Female
  Weight: 59.02 kg

DRUGS (17)
  1. LETAIRIS [Suspect]
     Indication: PULMONARY ARTERIAL HYPERTENSION
     Dates: start: 20081217, end: 20090101
  2. FUROSEMIDE [Concomitant]
  3. ALLEGRA [Concomitant]
  4. COUMADIN [Concomitant]
  5. ALDACTONE [Concomitant]
  6. FLOLAN [Concomitant]
  7. REVATIO [Concomitant]
  8. OXYGEN [Concomitant]
  9. ADVAIR HFA [Concomitant]
  10. NASONEX [Concomitant]
  11. LEXAPRO [Concomitant]
  12. TYLENOL (CAPLET) [Concomitant]
  13. VITAMIN TAB [Concomitant]
  14. ACIPHEX [Concomitant]
  15. ZOFRAN [Concomitant]
  16. PREDNISONE TAB [Concomitant]
  17. VICODIN [Concomitant]

REACTIONS (2)
  - HEPATIC ENZYME INCREASED [None]
  - HYPERBILIRUBINAEMIA [None]
